FAERS Safety Report 4452519-5 (Version None)
Quarter: 2004Q3

REPORT INFORMATION
  Report Type: 
  Country: None (occurrence: None)
  Receive Date: 20040916
  Receipt Date: 20040906
  Transmission Date: 20050211
  Serious: Yes (Life-Threatening, Hospitalization, Other)
  Sender: FDA-Public Use
  Company Number: 2004044694

PATIENT
  Age: 80 Year
  Sex: Female

DRUGS (10)
  1. UNASYN [Suspect]
     Indication: PNEUMONIA ASPIRATION
     Dosage: 3 GRAM (1.5 GRAM, 2 IN 1 D), INTRAVENOUS
     Route: 042
     Dates: start: 20040611, end: 20040625
  2. FAMOTIDINE [Suspect]
     Indication: GASTRIC ULCER
     Dosage: 10 MG (10 MG, 1 IN 1 D), ORAL
     Route: 048
     Dates: start: 20040524, end: 20040627
  3. FAMOTIDINE [Suspect]
     Indication: NAUSEA
     Dosage: 10 MG (10 MG, 1 IN 1 D), ORAL
     Route: 048
     Dates: start: 20040524, end: 20040627
  4. FAMOTIDINE [Suspect]
     Indication: PROPHYLAXIS AGAINST GASTROINTESTINAL ULCER
     Dosage: 10 MG (10 MG, 1 IN 1 D), ORAL
     Route: 048
     Dates: start: 20040524, end: 20040627
  5. POTASSIUM CANRENOATE (POTASSIUM CARENOATE0 [Suspect]
     Indication: CARDIAC FAILURE
     Dosage: 100 MG (100 MG, 1 IN 1 D), INTRAVENOUS
     Route: 042
     Dates: start: 20040613, end: 20040625
  6. POTASSIUM CANRENOATE (POTASSIUM CARENOATE0 [Suspect]
     Indication: HYPOKALAEMIA
     Dosage: 100 MG (100 MG, 1 IN 1 D), INTRAVENOUS
     Route: 042
     Dates: start: 20040613, end: 20040625
  7. FUROSEMIDE [Suspect]
     Indication: CARDIAC FAILURE
     Dosage: 20 MG (20 MG, 1 IN 1 D), INTRAVENOUS
     Route: 042
     Dates: start: 20040612, end: 20040618
  8. PROPIVERINE HYDROCHLORIDE (PROPIVERINE HYDROCHLORIDE) [Suspect]
     Indication: CYSTITIS
     Dosage: 20 MG (20 MG, 1 IN 1 D), ORAL
     Route: 048
     Dates: start: 20040524, end: 20040621
  9. ALL OTHER THERAPEUTIC PRODUCTS (ALL OTHER THERAPEUTIC PRODUCTS0 [Concomitant]
  10. AMINOFLUID (AMINO ACIDS NOS, ELECTROLYTES NOS, GLUCOSE) [Concomitant]

REACTIONS (4)
  - GRANULOCYTOPENIA [None]
  - HYPOKALAEMIA [None]
  - RESPIRATORY ARREST [None]
  - VENTRICULAR TACHYCARDIA [None]
